FAERS Safety Report 17606910 (Version 1)
Quarter: 2020Q1

REPORT INFORMATION
  Report Type: Spontaneous
  Country: FR (occurrence: FR)
  Receive Date: 20200331
  Receipt Date: 20200331
  Transmission Date: 20200409
  Serious: Yes (Other)
  Sender: FDA-Public Use
  Company Number: FR-STALLERGENES SAS-2082157

PATIENT
  Age: 48 Year
  Sex: Female

DRUGS (5)
  1. ORALAIR [Suspect]
     Active Substance: ANTHOXANTHUM ODORATUM POLLEN\DACTYLIS GLOMERATA POLLEN\LOLIUM PERENNE POLLEN\PHLEUM PRATENSE POLLEN\POA PRATENSIS POLLEN
     Route: 060
     Dates: start: 202002, end: 202003
  2. VENTOLINE [Concomitant]
     Active Substance: ALBUTEROL
     Route: 055
     Dates: start: 20200318
  3. BILASKA [Concomitant]
     Active Substance: BILASTINE
     Dates: start: 20200318
  4. RHINOMAXIL [Concomitant]
     Active Substance: BECLOMETHASONE DIPROPIONATE
     Route: 045
     Dates: start: 20200318
  5. DUORESP [Concomitant]
     Active Substance: BUDESONIDE\FORMOTEROL
     Route: 055
     Dates: start: 20200318

REACTIONS (1)
  - Respiratory tract infection bacterial [Recovered/Resolved]

NARRATIVE: CASE EVENT DATE: 20200219
